FAERS Safety Report 11843788 (Version 2)
Quarter: 2016Q1

REPORT INFORMATION
  Report Type: Report from Study
  Country: US (occurrence: US)
  Receive Date: 20151217
  Receipt Date: 20160114
  Transmission Date: 20160526
  Serious: Yes (Other)
  Sender: FDA-Public Use
  Company Number: US-GILEAD-2015-0187908

PATIENT
  Age: 47 Year
  Sex: Female

DRUGS (1)
  1. AMBRISENTAN [Suspect]
     Active Substance: AMBRISENTAN
     Indication: PULMONARY HYPERTENSION
     Dosage: 5 MG, QD
     Route: 065
     Dates: start: 20151116

REACTIONS (3)
  - Autoimmune disorder [Unknown]
  - Peripheral swelling [Unknown]
  - Wound secretion [Unknown]

NARRATIVE: CASE EVENT DATE: 201512
